FAERS Safety Report 4700675-3 (Version None)
Quarter: 2005Q2

REPORT INFORMATION
  Report Type: 
  Country: None (occurrence: None)
  Receive Date: 20050627
  Receipt Date: 20050609
  Transmission Date: 20051028
  Serious: Yes (Other)
  Sender: FDA-Public Use
  Company Number: 215188

PATIENT
  Age: 61 Year
  Sex: Female
  Weight: 57 kg

DRUGS (16)
  1. RITUXAN [Suspect]
     Indication: NON-HODGKIN'S LYMPHOMA
     Dosage: 560 MG, INTRAVENOUS
     Route: 042
     Dates: start: 20011204, end: 20020312
  2. CYCLOPHOSPHAMIDE [Suspect]
     Indication: NON-HODGKIN'S LYMPHOMA
     Dosage: 1150 MG, INTRAVENOUS; SEE IMAGE
     Route: 042
     Dates: start: 20011120, end: 20020214
  3. CYCLOPHOSPHAMIDE [Suspect]
     Indication: NON-HODGKIN'S LYMPHOMA
     Dosage: 1150 MG, INTRAVENOUS; SEE IMAGE
     Route: 042
     Dates: start: 20020313, end: 20020315
  4. CYCLOPHOSPHAMIDE [Suspect]
     Indication: NON-HODGKIN'S LYMPHOMA
     Dosage: 1150 MG, INTRAVENOUS; SEE IMAGE
     Route: 042
     Dates: start: 20020411, end: 20020414
  5. ADRIACIN (DOXORUBICIN HYDROCHLORIDE, DOXORUBICIN) [Suspect]
     Indication: NON-HODGKIN'S LYMPHOMA
     Dosage: 75 MG, INTRAVENOUS
     Route: 042
     Dates: start: 20011120, end: 20020214
  6. ONCOVIN [Suspect]
     Indication: NON-HODGKIN'S LYMPHOMA
     Dosage: 2 MG, INTRAVENOUS
     Route: 042
     Dates: start: 20011120, end: 20020214
  7. PREDONINE (PREDNISOLONE SODIUM SUCCINATE, PREDNISOLONE, PREDNISOLONE A [Suspect]
     Indication: NON-HODGKIN'S LYMPHOMA
     Dosage: 100 MG, ORAL
     Route: 048
     Dates: start: 20011120, end: 20020214
  8. CLYOCIDE (CYTARABINE) [Suspect]
     Indication: NON-HODGKIN'S LYMPHOMA
     Dosage: 3 G, INTRAVENOUS
     Route: 042
     Dates: start: 20020313, end: 20020315
  9. ETOPOSIDE [Suspect]
     Indication: NON-HODGKIN'S LYMPHOMA
     Dosage: 150 MG, INTRAVENOUS; SEE IMAGE
     Route: 042
     Dates: start: 20020313, end: 20020315
  10. ETOPOSIDE [Suspect]
     Indication: NON-HODGKIN'S LYMPHOMA
     Dosage: 150 MG, INTRAVENOUS; SEE IMAGE
     Route: 042
     Dates: start: 20020411, end: 20020414
  11. DECADRON [Suspect]
     Indication: NON-HODGKIN'S LYMPHOMA
     Dosage: 40 MG, INTRAVENOUS; SEE IMAGE
     Route: 042
     Dates: start: 20020313, end: 20020315
  12. DECADRON [Suspect]
     Indication: NON-HODGKIN'S LYMPHOMA
     Dosage: 40 MG, INTRAVENOUS; SEE IMAGE
     Route: 042
     Dates: start: 20020411, end: 20020414
  13. IBUPROFEN [Concomitant]
  14. POLARAMINE [Concomitant]
  15. L-PAM (MELPHALAN) [Concomitant]
  16. PLATELETS [Concomitant]

REACTIONS (1)
  - WHITE BLOOD CELL COUNT DECREASED [None]
